FAERS Safety Report 10459162 (Version 1)
Quarter: 2014Q3

REPORT INFORMATION
  Report Type: Spontaneous
  Country: SE (occurrence: SE)
  Receive Date: 20140917
  Receipt Date: 20140917
  Transmission Date: 20150326
  Serious: Yes (Hospitalization)
  Sender: FDA-Public Use
  Company Number: SE-ASTRAZENECA-2014SE67303

PATIENT
  Age: 61 Year
  Sex: Male

DRUGS (5)
  1. FENTANYL. [Concomitant]
     Active Substance: FENTANYL
     Dates: start: 20140822, end: 20140826
  2. NAROP [Suspect]
     Active Substance: ROPIVACAINE HYDROCHLORIDE
     Indication: ANALGESIC THERAPY
     Dosage: ^8-12ML/T^
     Route: 008
     Dates: start: 20140822, end: 20140825
  3. TAZOCIN [Concomitant]
     Active Substance: PIPERACILLIN SODIUM\TAZOBACTAM SODIUM
     Dates: start: 20140820, end: 20140827
  4. ESOMEPRAZOLE [Concomitant]
     Active Substance: ESOMEPRAZOLE
     Dates: start: 20140820, end: 20140827
  5. PROPOFOL. [Concomitant]
     Active Substance: PROPOFOL
     Dates: start: 20140822, end: 20140826

REACTIONS (4)
  - Paranoia [Recovered/Resolved]
  - Belligerence [Recovering/Resolving]
  - Anxiety [Recovering/Resolving]
  - Delirium [Recovered/Resolved]

NARRATIVE: CASE EVENT DATE: 20140823
